FAERS Safety Report 6045679-6 (Version None)
Quarter: 2009Q1

REPORT INFORMATION
  Report Type: 
  Country: None (occurrence: None)
  Receive Date: 20090121
  Receipt Date: 20090109
  Transmission Date: 20090719
  Serious: Yes (Hospitalization)
  Sender: FDA-Public Use
  Company Number: IT-SANOFI-SYNTHELABO-A01200900259

PATIENT
  Sex: Male

DRUGS (7)
  1. ALBUZOSIN [Concomitant]
     Dosage: UNK
  2. ZOFENOPRIL CALCIUM [Concomitant]
     Dosage: UNK
  3. ACETYLSALICYLIC ACID SRT [Concomitant]
     Dosage: UNK
  4. ROSUVASTATIN CALCIUM [Concomitant]
     Dosage: UNK
  5. ATORVASTATIN CALCIUM [Concomitant]
     Dosage: UNK
  6. FUROSEMIDE SODIUM [Concomitant]
     Dosage: UNK
  7. ELIGARD [Suspect]
     Indication: PROSTATE CANCER
     Dosage: 7.5 MG
     Route: 058
     Dates: start: 20070715, end: 20080815

REACTIONS (1)
  - MYELODYSPLASTIC SYNDROME [None]
